FAERS Safety Report 6186094-4 (Version None)
Quarter: 2009Q2

REPORT INFORMATION
  Report Type: 
  Country: None (occurrence: None)
  Receive Date: 20090507
  Receipt Date: 20090507
  Transmission Date: 20091009
  Serious: No
  Sender: FDA-Public Use
  Company Number: None

PATIENT
  Age: 30 Year
  Sex: Female
  Weight: 56.6996 kg

DRUGS (1)
  1. ZYRTEC [Suspect]
     Indication: URTICARIA
     Dosage: 10MG 1/DAY PO
     Route: 048
     Dates: start: 20090101, end: 20090503

REACTIONS (1)
  - PRURITUS [None]
